FAERS Safety Report 7860274-1 (Version None)
Quarter: 2011Q4

REPORT INFORMATION
  Report Type: 
  Country: None (occurrence: None)
  Receive Date: 20111026
  Receipt Date: 20111018
  Transmission Date: 20120403
  Serious: Yes (Other)
  Sender: FDA-Public Use
  Company Number: AUR-APL-2011-05056

PATIENT
  Sex: Female
  Weight: 95.2554 kg

DRUGS (6)
  1. AMITRIPTYLINE HCL [Concomitant]
  2. GABAPENTIN [Suspect]
     Indication: PAIN IN JAW
     Dosage: 900 MG (300 MG,3 IN 1 D),ORAL
     Route: 048
  3. GABAPENTIN [Suspect]
     Indication: NEURALGIA
     Dosage: 900 MG (300 MG,3 IN 1 D),ORAL
     Route: 048
  4. GABAPENTIN [Suspect]
     Indication: NERVE INJURY
     Dosage: 900 MG (300 MG,3 IN 1 D),ORAL
     Route: 048
  5. VERAPAMIL [Concomitant]
  6. CITALOPRAM HYDROBROMIDE [Concomitant]

REACTIONS (2)
  - DRUG INEFFECTIVE [None]
  - DRUG DISPENSING ERROR [None]
